FAERS Safety Report 5107573-4 (Version None)
Quarter: 2006Q3

REPORT INFORMATION
  Report Type: 
  Country: None (occurrence: None)
  Receive Date: 20060913
  Receipt Date: 20060913
  Transmission Date: 20061208
  Serious: Yes (Life-Threatening, Hospitalization)
  Sender: FDA-Public Use
  Company Number: None

PATIENT
  Age: 79 Year
  Sex: Male
  Weight: 77 kg

DRUGS (7)
  1. GLYBURIDE AND METFORMIN HCL [Suspect]
     Indication: DIABETES MELLITUS NON-INSULIN-DEPENDENT
     Dosage: 2 TABLETS BID PO
     Route: 048
  2. VIAGRA [Concomitant]
  3. TERAZOSIN HCL [Concomitant]
  4. CLONIDINE [Concomitant]
  5. NIFEDIPINE [Concomitant]
  6. ZOCOR [Concomitant]
  7. ACIPHEX [Concomitant]

REACTIONS (2)
  - DIALYSIS [None]
  - LACTIC ACIDOSIS [None]
